FAERS Safety Report 7554609-7 (Version None)
Quarter: 2011Q2

REPORT INFORMATION
  Report Type: 
  Country: None (occurrence: None)
  Receive Date: 20110617
  Receipt Date: 20110607
  Transmission Date: 20111010
  Serious: Yes (Life-Threatening, Hospitalization, Other)
  Sender: FDA-Public Use
  Company Number: US-ROCHE-782880

PATIENT
  Sex: Female

DRUGS (3)
  1. BEVACIZUMAB [Suspect]
     Indication: FALLOPIAN TUBE CANCER
     Route: 042
     Dates: start: 20100701
  2. PACLITAXEL [Suspect]
     Indication: FALLOPIAN TUBE CANCER
     Dosage: FREQUENCY: ON DAY 1, 8, 15
     Route: 042
     Dates: start: 20100701
  3. CARBOPLATIN [Suspect]
     Indication: FALLOPIAN TUBE CANCER
     Route: 042
     Dates: start: 20100701

REACTIONS (5)
  - HYPERTENSION [None]
  - HEADACHE [None]
  - HAEMOGLOBIN DECREASED [None]
  - ABDOMINAL PAIN [None]
  - SMALL INTESTINAL OBSTRUCTION [None]
